FAERS Safety Report 9007478 (Version 1)
Quarter: 2013Q1

REPORT INFORMATION
  Report Type: Spontaneous
  Country: US (occurrence: US)
  Receive Date: 20130111
  Receipt Date: 20130111
  Transmission Date: 20140127
  Serious: Yes (Other)
  Sender: FDA-Public Use
  Company Number: US-009507513-0902USA00885

PATIENT
  Age: 57 Year
  Sex: Female
  Weight: 67.13 kg

DRUGS (2)
  1. SINGULAIR [Suspect]
     Indication: BREAST RECONSTRUCTION
     Dosage: 10 MG, BID
     Route: 048
     Dates: start: 20080306, end: 20080430
  2. SINGULAIR [Suspect]
     Indication: PROPHYLAXIS

REACTIONS (4)
  - Atrial fibrillation [Unknown]
  - Palpitations [Unknown]
  - Drug dose omission [Unknown]
  - Overdose [Unknown]
